FAERS Safety Report 8809713 (Version 1)
Quarter: 2012Q4

REPORT INFORMATION
  Report Type: Report from Study
  Country: IT (occurrence: IT)
  Receive Date: 20120926
  Receipt Date: 20120926
  Transmission Date: 20130627
  Serious: Yes (Death, Other)
  Sender: FDA-Public Use
  Company Number: IT-CELGENEUS-083-21880-12013193

PATIENT
  Age: 62 Year
  Sex: Female

DRUGS (4)
  1. REVLIMID [Suspect]
     Indication: 5Q MINUS MDS
     Dosage: 15 Milligram
     Route: 048
     Dates: start: 20090121, end: 200909
  2. REVLIMID [Suspect]
     Dosage: 10 Milligram
     Route: 048
     Dates: start: 20090925, end: 20091002
  3. REVLIMID [Suspect]
     Dosage: 5 Milligram
     Route: 048
     Dates: start: 20091003, end: 20091015
  4. REVLIMID [Suspect]
     Dosage: 5 Milligram
     Route: 048
     Dates: end: 20100902

REACTIONS (3)
  - Myelodysplastic syndrome [Fatal]
  - Neutropenia [Not Recovered/Not Resolved]
  - Thrombocytopenia [Not Recovered/Not Resolved]
